FAERS Safety Report 5480607-3 (Version None)
Quarter: 2007Q4

REPORT INFORMATION
  Report Type: 
  Country: None (occurrence: None)
  Receive Date: 20071009
  Receipt Date: 20071004
  Transmission Date: 20080405
  Serious: Yes (Hospitalization)
  Sender: FDA-Public Use
  Company Number: FR-BRISTOL-MYERS SQUIBB COMPANY-13930292

PATIENT
  Age: 45 Year
  Sex: Male

DRUGS (3)
  1. SUSTIVA [Suspect]
  2. EPIVIR [Suspect]
  3. TENOFOVIR [Suspect]

REACTIONS (1)
  - HYPOVITAMINOSIS [None]
